FAERS Safety Report 25374980 (Version 1)
Quarter: 2025Q2

REPORT INFORMATION
  Report Type: Spontaneous
  Country: CN (occurrence: CN)
  Receive Date: 20250529
  Receipt Date: 20250529
  Transmission Date: 20250717
  Serious: Yes (Hospitalization, Other)
  Sender: PURDUE
  Company Number: CN-NAPPMUNDI-GBR-2025-0125945

PATIENT
  Age: 74 Year
  Sex: Female

DRUGS (1)
  1. OXYCONTIN [Suspect]
     Active Substance: OXYCODONE HYDROCHLORIDE
     Indication: Gastric cancer
     Dosage: 30 MILLIGRAM, DAILY
     Route: 048
     Dates: start: 20250509, end: 20250509

REACTIONS (4)
  - Delirium [Recovering/Resolving]
  - Miosis [Recovering/Resolving]
  - Oxygen saturation decreased [Recovering/Resolving]
  - Self-medication [Unknown]

NARRATIVE: CASE EVENT DATE: 20250501
